FAERS Safety Report 17963534 (Version 1)
Quarter: 2020Q2

REPORT INFORMATION
  Report Type: Spontaneous
  Country: CA (occurrence: CA)
  Receive Date: 20200630
  Receipt Date: 20200630
  Transmission Date: 20200714
  Serious: Yes (Other)
  Sender: FDA-Public Use
  Company Number: CA-PFIZER INC-2020248552

PATIENT
  Age: 71 Year
  Sex: Female

DRUGS (1)
  1. ADVIL PM [Suspect]
     Active Substance: DIPHENHYDRAMINE CITRATE\IBUPROFEN
     Dosage: UNK
     Route: 048
     Dates: end: 2020

REACTIONS (3)
  - Dyspnoea [Unknown]
  - Choking [Unknown]
  - Product size issue [Unknown]

NARRATIVE: CASE EVENT DATE: 202003
